FAERS Safety Report 4529662-5 (Version None)
Quarter: 2004Q4

REPORT INFORMATION
  Report Type: 
  Country: None (occurrence: None)
  Receive Date: 20041216
  Receipt Date: 20041208
  Transmission Date: 20050328
  Serious: Yes (Life-Threatening, Hospitalization)
  Sender: FDA-Public Use
  Company Number: DK-MERCK-0412DNK00005

PATIENT
  Age: 60 Year
  Sex: Female
  Weight: 60 kg

DRUGS (2)
  1. HYZAAR [Suspect]
     Indication: HYPERTENSION
     Route: 048
     Dates: start: 20010101, end: 20041107
  2. KALEORID [Concomitant]
     Route: 048

REACTIONS (4)
  - BLOOD BICARBONATE INCREASED [None]
  - BLOOD PH INCREASED [None]
  - HYPOKALAEMIA [None]
  - RHABDOMYOLYSIS [None]
